FAERS Safety Report 23683444 (Version 1)
Quarter: 2024Q1

REPORT INFORMATION
  Report Type: Spontaneous
  Country: US (occurrence: None)
  Receive Date: 20240327
  Receipt Date: 20240327
  Transmission Date: 20240409
  Serious: Yes (Death)
  Sender: FDA-Public Use
  Company Number: None

PATIENT
  Age: 71 Year
  Sex: Male

DRUGS (5)
  1. TACROLIMUS [Suspect]
     Active Substance: TACROLIMUS
     Indication: Lung transplant
     Dosage: FREQUENCY : DAILY;?
     Route: 048
  2. TACROLIMUS [Suspect]
     Active Substance: TACROLIMUS
  3. EVEROLIMUS [Suspect]
     Active Substance: EVEROLIMUS
  4. EVEROLIMUS [Suspect]
     Active Substance: EVEROLIMUS
  5. PREDNISONE [Suspect]
     Active Substance: PREDNISONE

REACTIONS (1)
  - Complications of transplanted lung [None]

NARRATIVE: CASE EVENT DATE: 20240325
